FAERS Safety Report 8951908 (Version 1)
Quarter: 2012Q4

REPORT INFORMATION
  Report Type: 
  Country: US (occurrence: US)
  Receive Date: 20121204
  Receipt Date: 20121204
  Transmission Date: 20130627
  Serious: No
  Sender: FDA-Public Use
  Company Number: US-AMGEN-USASP2012062272

PATIENT
  Age: 31 Year
  Sex: Female

DRUGS (2)
  1. ENBREL [Suspect]
     Indication: PSORIASIS
     Dosage: 50 UNK, qwk
     Route: 058
     Dates: end: 20120725
  2. ENBREL [Suspect]
     Indication: PSORIATIC ARTHROPATHY

REACTIONS (7)
  - Panic attack [Recovered/Resolved]
  - Stress [Recovered/Resolved]
  - Vision blurred [Unknown]
  - Fatigue [Unknown]
  - Dyspnoea [Unknown]
  - Dysphonia [Unknown]
  - Psoriasis [Not Recovered/Not Resolved]
